FAERS Safety Report 8599448-3 (Version None)
Quarter: 2012Q3

REPORT INFORMATION
  Report Type: 
  Country: None (occurrence: None)
  Receive Date: 20120816
  Receipt Date: 20120803
  Transmission Date: 20120928
  Serious: Yes (Hospitalization, Other)
  Sender: FDA-Public Use
  Company Number: FR-FRI-1000037778

PATIENT
  Sex: Female

DRUGS (5)
  1. QUESTRAN [Concomitant]
  2. ESCITALOPRAM [Suspect]
     Dosage: 1 DF
     Route: 048
  3. LEVOTHYROXINE SODIUM [Concomitant]
  4. ALDACTAZINE [Concomitant]
  5. ESCITALOPRAM [Suspect]
     Dosage: 2 DF

REACTIONS (6)
  - SUICIDAL IDEATION [None]
  - SWELLING [None]
  - WEIGHT INCREASED [None]
  - SUICIDE ATTEMPT [None]
  - HEADACHE [None]
  - NAUSEA [None]
